FAERS Safety Report 7279016-6 (Version None)
Quarter: 2011Q1

REPORT INFORMATION
  Report Type: 
  Country: None (occurrence: None)
  Receive Date: 20110207
  Receipt Date: 20110128
  Transmission Date: 20110831
  Serious: Yes (Other)
  Sender: FDA-Public Use
  Company Number: PHHY2010BR34907

PATIENT
  Sex: Female

DRUGS (6)
  1. DIOVAN [Suspect]
     Indication: HYPERTENSION
     Dosage: 1 TABLET A DAY
     Route: 048
  2. ATENOLOL [Concomitant]
     Indication: HYPERTENSION
     Dosage: 1 TABLET A DAY
     Route: 048
  3. HYDROCHLOROTHIAZIDE [Concomitant]
     Indication: HYPERTENSION
     Dosage: 1 TABLET A DAY
     Route: 048
  4. ATENSINA [Concomitant]
     Indication: HYPERTENSION
     Dosage: 1 TABLET A DAY
     Route: 048
  5. ADALAT [Concomitant]
     Indication: HYPERTENSION
     Dosage: 1 TABLET A DAY
     Route: 048
  6. LASIX [Concomitant]
     Indication: HYPERTENSION
     Dosage: 1 TABLET A DAY
     Route: 048

REACTIONS (5)
  - EYE HAEMORRHAGE [None]
  - DRUG DOSE OMISSION [None]
  - EYE IRRITATION [None]
  - VISION BLURRED [None]
  - BLOOD PRESSURE INCREASED [None]
